FAERS Safety Report 6600277-8 (Version None)
Quarter: 2010Q1

REPORT INFORMATION
  Report Type: 
  Country: None (occurrence: None)
  Receive Date: 20100217
  Receipt Date: 20100209
  Transmission Date: 20100710
  Serious: Yes (Hospitalization)
  Sender: FDA-Public Use
  Company Number: 2010JP000819

PATIENT
  Age: 45 Year
  Sex: Male

DRUGS (5)
  1. TACROLIMUS [Suspect]
     Indication: LUNG TRANSPLANT
  2. ESOMEPRAZOLE MAGNESIUM [Suspect]
  3. PANTOPRAZOLE [Suspect]
  4. AZATHIOPRINE [Concomitant]
  5. CALCIUM CARBONATE [Concomitant]

REACTIONS (5)
  - HYPERPARATHYROIDISM SECONDARY [None]
  - HYPOAESTHESIA [None]
  - HYPOAESTHESIA ORAL [None]
  - HYPOMAGNESAEMIA [None]
  - VITAMIN D DEFICIENCY [None]
